FAERS Safety Report 15764730 (Version 2)
Quarter: 2019Q1

REPORT INFORMATION
  Report Type: Spontaneous
  Country: CA (occurrence: CA)
  Receive Date: 20181227
  Receipt Date: 20190102
  Transmission Date: 20190417
  Serious: Yes (Other)
  Sender: FDA-Public Use
  Company Number: CA-ORION CORPORATION ORION PHARMA-TREX2018-2683

PATIENT
  Age: 40 Year
  Sex: Female
  Weight: 62 kg

DRUGS (4)
  1. METHOTREXATE (TRADE NAME UNKNOWN) [Suspect]
     Active Substance: METHOTREXATE
     Indication: RHEUMATOID ARTHRITIS
     Route: 048
  2. AZATHIOPRINE. [Suspect]
     Active Substance: AZATHIOPRINE
     Indication: RHEUMATOID ARTHRITIS
     Route: 048
  3. DULOXETINE. [Concomitant]
     Active Substance: DULOXETINE
     Indication: RHEUMATOID ARTHRITIS
     Route: 048
  4. NAPROXEN. [Concomitant]
     Active Substance: NAPROXEN
     Dosage: AS NEEDED
     Route: 065

REACTIONS (6)
  - Influenza [Not Recovered/Not Resolved]
  - Nasopharyngitis [Unknown]
  - C-reactive protein increased [Unknown]
  - Drug ineffective [Unknown]
  - Sinusitis [Unknown]
  - Transaminases abnormal [Unknown]
